FAERS Safety Report 6822630-X (Version None)
Quarter: 2010Q3

REPORT INFORMATION
  Report Type: 
  Country: None (occurrence: None)
  Receive Date: 20100706
  Receipt Date: 20100706
  Transmission Date: 20110219
  Serious: Yes (Life-Threatening, Hospitalization, Disabling)
  Sender: FDA-Public Use
  Company Number: None

PATIENT
  Sex: Female
  Weight: 49.8957 kg

DRUGS (2)
  1. HYDROXYCHLOROQUINE SULFATE [Suspect]
     Indication: SYSTEMIC LUPUS ERYTHEMATOSUS RASH
     Dosage: TAKE ONE AND ONE HALF TABLETS DAILY PO
     Route: 048
     Dates: start: 20100503, end: 20100520
  2. HYDROXYCHLOROQUINE SULFATE [Suspect]
     Indication: SYSTEMIC LUPUS ERYTHEMATOSUS RASH
     Dosage: TAKE ONE AND ONE HALF TABLETS DAILY PO
     Route: 048
     Dates: start: 20100530, end: 20100604

REACTIONS (8)
  - CONDITION AGGRAVATED [None]
  - FLUID RETENTION [None]
  - GAIT DISTURBANCE [None]
  - HYPOAESTHESIA [None]
  - MUSCULAR WEAKNESS [None]
  - OEDEMA PERIPHERAL [None]
  - PAIN IN EXTREMITY [None]
  - SYSTEMIC LUPUS ERYTHEMATOSUS RASH [None]
